FAERS Safety Report 6102616-3 (Version None)
Quarter: 2009Q1

REPORT INFORMATION
  Report Type: 
  Country: None (occurrence: None)
  Receive Date: 20090304
  Receipt Date: 20081014
  Transmission Date: 20090719
  Serious: No
  Sender: FDA-Public Use
  Company Number: A0751778A

PATIENT
  Age: 57 Year
  Sex: Male

DRUGS (1)
  1. REQUIP [Suspect]
     Indication: PARKINSON'S DISEASE
     Dosage: 4MG THREE TIMES PER DAY
     Route: 048
     Dates: start: 20040101

REACTIONS (2)
  - BLOOD PRESSURE FLUCTUATION [None]
  - DIZZINESS [None]
